FAERS Safety Report 8249215-5 (Version None)
Quarter: 2012Q1

REPORT INFORMATION
  Report Type: 
  Country: None (occurrence: None)
  Receive Date: 20120315
  Receipt Date: 20120306
  Transmission Date: 20120608
  Serious: Yes (Hospitalization, Other)
  Sender: FDA-Public Use
  Company Number: 2011028066

PATIENT
  Age: 34 Year
  Sex: Female
  Weight: 88.905 kg

DRUGS (52)
  1. HIZENTRA [Suspect]
     Indication: IMMUNODEFICIENCY COMMON VARIABLE
     Dosage: 10 G 1X/WEEK, 2 GM 10 ML VIAL; 50 ML (12.5 ML PER SITE) OVER APPROX 1 HOUR SUBCUTANEOUS
     Route: 058
     Dates: start: 20110331
  2. TOPAMAX [Concomitant]
  3. PROMETHAZINE [Concomitant]
  4. PREDNISONE TAB [Concomitant]
  5. VITAMIN D [Concomitant]
  6. PHENERGAN [Concomitant]
  7. LASIX [Concomitant]
  8. MUCINEX ER (GUAIFENESIN) [Concomitant]
  9. AVELOX [Concomitant]
  10. CALCIUM WITH VITAMIN D [Concomitant]
  11. HIZENTRA [Suspect]
     Indication: IMMUNODEFICIENCY COMMON VARIABLE
     Dosage: 10 G 1X/WEEK, 2 GM (10 ML) ON 4 SITES OVER 1 HOUR FOUR SITES/ONE HOUR SUBCUTANEOUS
     Route: 058
     Dates: start: 20120101
  12. MAGNESIUM [Concomitant]
  13. DIFIL-G (MUCOSYL) [Concomitant]
  14. MAGNESIUM OXIDE [Concomitant]
  15. HIZENTRA [Suspect]
     Indication: IMMUNODEFICIENCY COMMON VARIABLE
     Dosage: SUBCUTANEOUS
     Route: 058
  16. SINGULAIR [Concomitant]
  17. FLOVENT [Concomitant]
  18. ZINC SULFATE [Concomitant]
  19. MULTIVITAMIN (ACCOMIN MULTIVITAMIN) [Concomitant]
  20. RECLAST [Concomitant]
  21. HIZENTRA [Suspect]
     Indication: IMMUNODEFICIENCY COMMON VARIABLE
     Dosage: 10 G 1X/WEEK, 4 SITES OVER 1 HOUR SUBCUTANEOUS
     Route: 058
     Dates: start: 20100917
  22. WELLBUTRIN XL [Concomitant]
  23. FLONASE [Concomitant]
  24. KETOROLAC TROMETHAMINE [Concomitant]
  25. HIZENTRA [Suspect]
     Indication: IMMUNODEFICIENCY COMMON VARIABLE
     Dosage: 2 GM 10 ML ON FOUR SITES OVER ONE HOUR SUBCUTANEOUS
     Route: 058
  26. HIZENTRA [Suspect]
     Indication: IMMUNODEFICIENCY COMMON VARIABLE
     Dosage: 4 GM 20 ML ON FOUR SITES OVER ONE HOUR SUBCUTANEOUS
     Route: 058
  27. HIZENTRA [Suspect]
     Indication: IMMUNODEFICIENCY COMMON VARIABLE
     Dosage: 4 GM (20 ML) ON FOUR SITES/ONE HOUR SUBCUTANEOUS
     Route: 058
  28. TORADOL (METOROLAC TROMETHAMINE) [Concomitant]
  29. XANAX [Concomitant]
  30. FLOR-CON (POTASSIUM CHLORIDE) [Concomitant]
  31. BENADRYL [Concomitant]
  32. GABITRIL [Concomitant]
  33. ADDERALL XT (OBETROL) [Concomitant]
  34. LORTAB [Concomitant]
  35. CALCIUM CARBONATE [Concomitant]
  36. REPREXAIN (HYDROCODONE W/IBUPROFEN) [Concomitant]
  37. HIZENTRA [Suspect]
     Indication: IMMUNODEFICIENCY COMMON VARIABLE
     Dosage: 4 GM (20 ML) SUBCUTANEOUS
     Route: 058
     Dates: start: 20120101
  38. MAXALT MLT (RIZATRIPTAN BENZOATE) [Concomitant]
  39. MS CONTIN [Concomitant]
  40. PANTANASE (OLOPATADINE) [Concomitant]
  41. PROAIR HFA (PROCATEROL HYDROCHLORIDE) [Concomitant]
  42. LOVAZA [Concomitant]
  43. CYANO-PLEX (CYANO B-COMPLEX) [Concomitant]
  44. MS CONTIN [Concomitant]
  45. HIZENTRA [Suspect]
     Indication: IMMUNODEFICIENCY COMMON VARIABLE
     Dosage: 4 GM 20 ML VIAL SUBCUTANEOUS
     Route: 058
     Dates: start: 20100917
  46. HIZENTRA [Suspect]
     Indication: IMMUNODEFICIENCY COMMON VARIABLE
     Dosage: 10 G 1X/WEEK, 2 GM (10 ML) ON FOUR SITES/ONE HOUR SUBCUTANEOUS
     Route: 058
     Dates: start: 20120206, end: 20120206
  47. BACLOFEN [Concomitant]
  48. ACYCLOVIR [Concomitant]
  49. FLUVOXAMINE MALEATE (FLUVOXAMINE) [Concomitant]
  50. TRINSICON [Concomitant]
  51. ROCEPHIN [Concomitant]
  52. XANAX [Concomitant]

REACTIONS (9)
  - PAIN [None]
  - CHEST DISCOMFORT [None]
  - PANIC ATTACK [None]
  - STAPHYLOCOCCAL INFECTION [None]
  - DYSPNOEA [None]
  - SINUSITIS [None]
  - PNEUMONIA [None]
  - LOCALISED INFECTION [None]
  - LUNG INFECTION [None]
